FAERS Safety Report 24654388 (Version 1)
Quarter: 2024Q4

REPORT INFORMATION
  Report Type: Spontaneous
  Country: FR (occurrence: FR)
  Receive Date: 20241122
  Receipt Date: 20241122
  Transmission Date: 20250115
  Serious: Yes (Life-Threatening, Hospitalization)
  Sender: MYLAN
  Company Number: None

PATIENT
  Age: 27 Year
  Sex: Female
  Weight: 96 kg

DRUGS (5)
  1. DEXAMETHASONE [Suspect]
     Active Substance: DEXAMETHASONE
     Indication: Prophylaxis of nausea and vomiting
     Dosage: DOSE UNKNOWN
     Route: 042
     Dates: start: 20240930, end: 20240930
  2. SUFENTANIL CITRATE [Suspect]
     Active Substance: SUFENTANIL CITRATE
     Indication: Analgesic therapy
     Dosage: DOSE UNKNOWN
     Route: 042
     Dates: start: 20240930, end: 20240930
  3. LIDOCAINE [Suspect]
     Active Substance: LIDOCAINE
     Indication: Anaesthesia
     Dosage: DOSE UNKNOWN
     Route: 042
     Dates: start: 20240930, end: 20240930
  4. SEVOFLURANE [Suspect]
     Active Substance: SEVOFLURANE
     Indication: Maintenance of anaesthesia
     Dosage: DOSE UNKNOWN 1 FP
     Route: 055
     Dates: start: 20240930, end: 20240930
  5. MIVACRON [Suspect]
     Active Substance: MIVACURIUM CHLORIDE
     Indication: Neuromuscular blocking therapy
     Dosage: 1FP DOSE UNKNOWN
     Route: 042
     Dates: start: 20240930, end: 20240930

REACTIONS (1)
  - Anaphylactic reaction [Recovered/Resolved]

NARRATIVE: CASE EVENT DATE: 20240930
